FAERS Safety Report 13981537 (Version 1)
Quarter: 2017Q3

REPORT INFORMATION
  Report Type: Spontaneous
  Country: US (occurrence: US)
  Receive Date: 20170917
  Receipt Date: 20170917
  Transmission Date: 20171128
  Serious: Yes (Other)
  Sender: FDA-Public Use
  Company Number: None

PATIENT
  Age: 86 Year
  Sex: Female
  Weight: 51.75 kg

DRUGS (28)
  1. XARELTO [Suspect]
     Active Substance: RIVAROXABAN
     Indication: ATRIAL FIBRILLATION
     Dosage: ?          QUANTITY:1 TABLET(S);?
     Route: 048
  2. BLACK PEPPER. [Concomitant]
     Active Substance: BLACK PEPPER
  3. LEMON. [Concomitant]
     Active Substance: LEMON
  4. LOZARTAN POTASSIUM [Concomitant]
  5. RIVAROXABAN [Concomitant]
     Active Substance: RIVAROXABAN
  6. GARLIC. [Concomitant]
     Active Substance: GARLIC
  7. COCONUT WATER [Concomitant]
  8. CINNAMON. [Concomitant]
     Active Substance: CINNAMON
  9. OTHER HERBS [Concomitant]
  10. MARJORAM [Concomitant]
  11. AMLODIPINE [Concomitant]
     Active Substance: AMLODIPINE BESYLATE
  12. VITAMIN D [Concomitant]
     Active Substance: CHOLECALCIFEROL
  13. CALCIUM [Concomitant]
     Active Substance: CALCIUM
  14. CURCUMIN [Concomitant]
     Active Substance: CURCUMIN
  15. ROSEMARY [Concomitant]
     Active Substance: ROSEMARY
  16. ROSUVASTATIN CALCIUM (CRESTOR) [Concomitant]
  17. FOLIC ACID. [Concomitant]
     Active Substance: FOLIC ACID
  18. MULTI-VITAMINS AND MINERALS [Concomitant]
  19. GINGER. [Concomitant]
     Active Substance: GINGER
  20. VITAMIN B COMPLEX [Concomitant]
     Active Substance: CYANOCOBALAMIN\DEXPANTHENOL\NIACINAMIDE\PYRIDOXINE HYDROCHLORIDE\RIBOFLAVIN 5^-PHOSPHATE SODIUM\THIAMINE HYDROCHLORIDE\VITAMIN B COMPLEX
  21. CURRY [Concomitant]
  22. PARSLEY FLAKES [Concomitant]
  23. OREGANO. [Concomitant]
     Active Substance: OREGANO
  24. LIME [Concomitant]
     Active Substance: LIME (CALCIUM OXIDE)\LIME (CITRUS)
  25. XARELTO [Suspect]
     Active Substance: RIVAROXABAN
     Indication: PNEUMONIA STAPHYLOCOCCAL
     Dosage: ?          QUANTITY:1 TABLET(S);?
     Route: 048
  26. METOPROLOL. [Concomitant]
     Active Substance: METOPROLOL
  27. TURMERIC [Concomitant]
     Active Substance: HERBALS\TURMERIC
  28. OTHER CITRUS [Concomitant]

REACTIONS (1)
  - Haemorrhage [None]

NARRATIVE: CASE EVENT DATE: 20170517
